FAERS Safety Report 8489463-2 (Version None)
Quarter: 2012Q3

REPORT INFORMATION
  Report Type: 
  Country: None (occurrence: None)
  Receive Date: 20120705
  Receipt Date: 20120625
  Transmission Date: 20120928
  Serious: Yes (Hospitalization)
  Sender: FDA-Public Use
  Company Number: US-JNJFOC-20120601007

PATIENT
  Sex: Male
  Weight: 93 kg

DRUGS (16)
  1. LOPRESSOR [Concomitant]
     Route: 065
  2. ABIRATERONE ACETATE [Suspect]
     Route: 048
     Dates: start: 20120614, end: 20120622
  3. DUTASTERIDE [Suspect]
     Indication: PROSTATE CANCER METASTATIC
     Route: 048
     Dates: start: 20120525, end: 20120528
  4. DUTASTERIDE [Suspect]
     Route: 048
     Dates: start: 20120614, end: 20120622
  5. ABIRATERONE ACETATE [Suspect]
     Indication: PROSTATE CANCER METASTATIC
     Route: 048
     Dates: start: 20120329, end: 20120529
  6. MULTI-VITAMINS [Concomitant]
     Route: 065
  7. TRAZODONE HCL [Concomitant]
     Route: 065
  8. ASPIRIN [Concomitant]
     Route: 065
  9. COLACE [Concomitant]
     Route: 065
  10. ZANTAC [Concomitant]
     Route: 065
  11. TRICOR [Concomitant]
     Route: 065
  12. PREDNISONE [Suspect]
     Indication: PROSTATE CANCER METASTATIC
     Route: 048
     Dates: end: 20120529
  13. GABAPENTIN [Concomitant]
     Route: 065
  14. PRAVACHOL [Concomitant]
     Route: 065
  15. ISORDIL [Concomitant]
     Route: 065
  16. ROPINIROLE [Concomitant]
     Route: 065

REACTIONS (4)
  - ANGINA UNSTABLE [None]
  - PANCREATITIS ACUTE [None]
  - LIPASE INCREASED [None]
  - PNEUMONIA [None]
